FAERS Safety Report 10263746 (Version 1)
Quarter: 2014Q2

REPORT INFORMATION
  Report Type: Spontaneous
  Country: CN (occurrence: CN)
  Receive Date: 20140627
  Receipt Date: 20140627
  Transmission Date: 20141212
  Serious: Yes (Other)
  Sender: FDA-Public Use
  Company Number: CN-ROCHE-1422005

PATIENT
  Age: 34 Year
  Sex: Female

DRUGS (2)
  1. LUCENTIS [Suspect]
     Indication: PRODUCT USED FOR UNKNOWN INDICATION
     Route: 031
  2. VERTEPORFIN [Suspect]
     Indication: PRODUCT USED FOR UNKNOWN INDICATION
     Route: 065

REACTIONS (5)
  - Visual acuity reduced [Unknown]
  - Retinal detachment [Unknown]
  - Retinal detachment [Unknown]
  - Retinal pigment epitheliopathy [Unknown]
  - Choroidal haemorrhage [Unknown]
